FAERS Safety Report 4475713-6 (Version None)
Quarter: 2004Q3

REPORT INFORMATION
  Report Type: 
  Country: None (occurrence: None)
  Receive Date: 20040923
  Receipt Date: 20040719
  Transmission Date: 20050211
  Serious: No
  Sender: FDA-Public Use
  Company Number: USA040772896

PATIENT
  Age: 75 Year
  Sex: Female
  Weight: 57 kg

DRUGS (2)
  1. FORTEO [Suspect]
     Indication: OSTEOPOROSIS
     Dosage: 20 UG/1 DAY
     Dates: start: 20040601
  2. CALCIUM WITH VITAMIN D [Concomitant]

REACTIONS (5)
  - ASTHENIA [None]
  - DYSSTASIA [None]
  - MIDDLE INSOMNIA [None]
  - MUSCLE FATIGUE [None]
  - TREMOR [None]
